FAERS Safety Report 20979432 (Version 3)
Quarter: 2022Q3

REPORT INFORMATION
  Report Type: Spontaneous
  Country: US (occurrence: US)
  Receive Date: 20220620
  Receipt Date: 20220912
  Transmission Date: 20221026
  Serious: Yes (Other)
  Sender: FDA-Public Use
  Company Number: US-GLAXOSMITHKLINE-US2022AMR093018

PATIENT
  Sex: Female

DRUGS (1)
  1. ZEJULA [Suspect]
     Active Substance: NIRAPARIB
     Indication: Ovarian cancer
     Dosage: 200 MG, QD

REACTIONS (6)
  - Intestinal obstruction [Unknown]
  - Fatigue [Unknown]
  - Constipation [Unknown]
  - Dyspepsia [Not Recovered/Not Resolved]
  - Adverse drug reaction [Unknown]
  - Tissue injury [Unknown]
